FAERS Safety Report 9803471 (Version 3)
Quarter: 2014Q1

REPORT INFORMATION
  Report Type: Spontaneous
  Country: US (occurrence: US)
  Receive Date: 20140108
  Receipt Date: 20140217
  Transmission Date: 20141002
  Serious: No
  Sender: FDA-Public Use
  Company Number: US-PFIZER INC-2013049343

PATIENT
  Age: 58 Year
  Sex: Female
  Weight: 81.63 kg

DRUGS (5)
  1. LYRICA [Suspect]
     Indication: PAIN
     Dosage: 100 MG, 3X/DAY
     Route: 048
     Dates: start: 20131202
  2. LYRICA [Suspect]
     Indication: COMPLEX REGIONAL PAIN SYNDROME
  3. HYDROCODONE W/ACETAMINOPHEN [Concomitant]
     Dosage: UNK
  4. CLARITIN [Concomitant]
     Indication: HYPERSENSITIVITY
     Dosage: UNK 1X/DAY
  5. VICODIN [Concomitant]
     Indication: PAIN
     Dosage: UNK, (HYDROCODONE BITARTRATE 5, PARACETAMOL 325)
     Route: 048

REACTIONS (5)
  - Off label use [Unknown]
  - Activities of daily living impaired [Unknown]
  - Weight abnormal [Unknown]
  - Malaise [Unknown]
  - Therapeutic response unexpected [Not Recovered/Not Resolved]
